FAERS Safety Report 25798638 (Version 1)
Quarter: 2025Q3

REPORT INFORMATION
  Report Type: Spontaneous
  Country: US (occurrence: US)
  Receive Date: 20250913
  Receipt Date: 20250913
  Transmission Date: 20251020
  Serious: No
  Sender: GLAXOSMITHKLINE
  Company Number: US-GSK-US2025105039

PATIENT
  Sex: Female

DRUGS (2)
  1. VENTOLIN HFA [Suspect]
     Active Substance: ALBUTEROL SULFATE
     Indication: Asthma
     Dosage: 2 PUFF(S), BID PRN; BUT THE PATIENT TAKES 2 PUFFS IN THE AM AND 2 PUFFS IN THE PM
  2. BUDESONIDE [Concomitant]
     Active Substance: BUDESONIDE
     Indication: Asthma

REACTIONS (1)
  - Wrong technique in device usage process [Unknown]
